FAERS Safety Report 25326003 (Version 2)
Quarter: 2025Q2

REPORT INFORMATION
  Report Type: Spontaneous
  Country: CN (occurrence: CN)
  Receive Date: 20250516
  Receipt Date: 20250523
  Transmission Date: 20250716
  Serious: Yes (Hospitalization)
  Sender: MERCK SHARP & DOHME LLC
  Company Number: CN-009507513-2501CHN005080

PATIENT
  Age: 60 Year
  Sex: Male
  Weight: 79 kg

DRUGS (1)
  1. LAGEVRIO [Suspect]
     Active Substance: MOLNUPIRAVIR
     Indication: COVID-19 treatment
     Dosage: DOSE DESCRIPTION : 0.8 G, Q12H?DAILY DOSE : 1.6 GRAM
     Route: 048
     Dates: start: 20240504, end: 20240508

REACTIONS (10)
  - Pneumonia bacterial [Recovered/Resolved]
  - Pollakiuria [Unknown]
  - Urine flow decreased [Unknown]
  - Urinary hesitation [Unknown]
  - Dysuria [Unknown]
  - Myoglobin blood increased [Unknown]
  - Bacillus test positive [Unknown]
  - Streptococcus test positive [Unknown]
  - Respiratory alkalosis [Unknown]
  - Electrolyte imbalance [Recovered/Resolved]

NARRATIVE: CASE EVENT DATE: 20240501
